FAERS Safety Report 6575981-0 (Version None)
Quarter: 2010Q1

REPORT INFORMATION
  Report Type: 
  Country: None (occurrence: None)
  Receive Date: 20100209
  Receipt Date: 20100128
  Transmission Date: 20100710
  Serious: Yes (Hospitalization)
  Sender: FDA-Public Use
  Company Number: US-SANOFI-AVENTIS-2010SA006145

PATIENT
  Age: 59 Year
  Sex: Male

DRUGS (2)
  1. LANTUS [Suspect]
     Dosage: DOSE:60 UNIT(S)
     Route: 058
     Dates: start: 20100101
  2. ANTIBIOTICS [Concomitant]
     Route: 042
     Dates: start: 20100111

REACTIONS (2)
  - BLOOD GLUCOSE INCREASED [None]
  - GROIN ABSCESS [None]
